FAERS Safety Report 4648792-0 (Version None)
Quarter: 2005Q2

REPORT INFORMATION
  Report Type: 
  Country: None (occurrence: None)
  Receive Date: 20050429
  Receipt Date: 20030407
  Transmission Date: 20051028
  Serious: Yes (Hospitalization, Disabling, Other)
  Sender: FDA-Public Use
  Company Number: US-MERCK-0304USA00806

PATIENT
  Age: 41 Year
  Sex: Female
  Weight: 57 kg

DRUGS (3)
  1. VIOXX [Suspect]
     Indication: ARTHRALGIA
     Route: 048
     Dates: start: 19990101, end: 20010101
  2. VIOXX [Suspect]
     Indication: SYSTEMIC LUPUS ERYTHEMATOSUS
     Route: 048
     Dates: start: 19990101, end: 20010101
  3. ASPIRIN [Concomitant]
     Route: 065

REACTIONS (34)
  - ALCOHOLISM [None]
  - ANGINA PECTORIS [None]
  - ANOREXIA [None]
  - ATHEROSCLEROSIS [None]
  - CHEST DISCOMFORT [None]
  - CHLOASMA [None]
  - CHRONIC SINUSITIS [None]
  - CONSTIPATION [None]
  - CORONARY ARTERY DISEASE [None]
  - COUGH [None]
  - DEPRESSION [None]
  - DIZZINESS [None]
  - DRUG DEPENDENCE [None]
  - DYSURIA [None]
  - EUSTACHIAN TUBE DISORDER [None]
  - FEELING ABNORMAL [None]
  - GASTRIC ULCER [None]
  - GASTROOESOPHAGEAL REFLUX DISEASE [None]
  - HEADACHE [None]
  - HYPERTENSION [None]
  - ILIAC ARTERY STENOSIS [None]
  - INJURY [None]
  - INTERMITTENT CLAUDICATION [None]
  - MALAISE [None]
  - MUSCLE SPASMS [None]
  - MYOCARDIAL INFARCTION [None]
  - NICOTINE DEPENDENCE [None]
  - PARAESTHESIA [None]
  - PERIPHERAL VASCULAR DISORDER [None]
  - PLEURISY [None]
  - PULMONARY CALCIFICATION [None]
  - SINUS BRADYCARDIA [None]
  - STOMATITIS [None]
  - STRESS [None]
